FAERS Safety Report 21274660 (Version 1)
Quarter: 2022Q3

REPORT INFORMATION
  Report Type: Spontaneous
  Country: US (occurrence: US)
  Receive Date: 20220831
  Receipt Date: 20220831
  Transmission Date: 20221027
  Serious: Yes (Other)
  Sender: FDA-Public Use
  Company Number: US-AMERICAN REGENT INC-2022001834

PATIENT
  Sex: Female
  Weight: 44.898 kg

DRUGS (2)
  1. FERRIC CARBOXYMALTOSE [Suspect]
     Active Substance: FERRIC CARBOXYMALTOSE
     Indication: Iron deficiency anaemia
     Dosage: 750 MILLIGRAM IN SODIUM CHLORIDE (NS) 0.9% 100 ML , SINGLE
     Route: 042
     Dates: start: 20180629, end: 20180629
  2. FERRIC CARBOXYMALTOSE [Suspect]
     Active Substance: FERRIC CARBOXYMALTOSE
     Dosage: 750 MILLIGRAM IN SODIUM CHLORIDE (NS) 0.9% 100 ML , SINGLE
     Route: 042
     Dates: start: 20180706, end: 20180706

REACTIONS (10)
  - Hypophosphataemia [Unknown]
  - Confusional state [Unknown]
  - Vision blurred [Unknown]
  - Pain in jaw [Unknown]
  - Asthenia [Unknown]
  - Feeling abnormal [Recovered/Resolved]
  - Headache [Unknown]
  - Nausea [Recovered/Resolved]
  - Dizziness [Unknown]
  - Drug hypersensitivity [Unknown]

NARRATIVE: CASE EVENT DATE: 20180101
